FAERS Safety Report 12763586 (Version 5)
Quarter: 2016Q4

REPORT INFORMATION
  Report Type: Report from Study
  Country: US (occurrence: US)
  Receive Date: 20160920
  Receipt Date: 20161122
  Transmission Date: 20170207
  Serious: Yes (Hospitalization)
  Sender: FDA-Public Use
  Company Number: US-BAYER-2016-178301

PATIENT
  Age: 59 Year
  Sex: Female

DRUGS (2)
  1. STIVARGA [Suspect]
     Active Substance: REGORAFENIB
     Indication: COLORECTAL CANCER
     Dosage: DAILY DOSE 160 MG
     Route: 048
     Dates: start: 20160906, end: 201609
  2. STIVARGA [Suspect]
     Active Substance: REGORAFENIB
     Indication: COLORECTAL CANCER
     Dosage: 160 MG, QD
     Route: 048
     Dates: start: 201609

REACTIONS (12)
  - Abdominal pain [None]
  - Dizziness [None]
  - Clostridium difficile infection [None]
  - Decreased appetite [None]
  - Urticaria [None]
  - Urinary tract infection [None]
  - Lymphadenopathy [None]
  - Pyrexia [None]
  - Nausea [None]
  - Diarrhoea [None]
  - Fatigue [Not Recovered/Not Resolved]
  - Blood pressure increased [None]

NARRATIVE: CASE EVENT DATE: 2016
